FAERS Safety Report 7434317 (Version 3)
Quarter: 2012Q4

REPORT INFORMATION
  Report Type: 
  Country: US (occurrence: US)
  Receive Date: 20100624
  Receipt Date: 20121012
  Transmission Date: 20130627
  Serious: Yes (Other)
  Sender: FDA-Public Use
  Company Number: US-PFIZER INC-2008066586

PATIENT
  Age: 80 Year
  Sex: Female

DRUGS (13)
  1. PROVERA [Suspect]
     Indication: HORMONE REPLACEMENT THERAPY
     Dosage: 2.5 mg, UNK
     Route: 048
     Dates: start: 19970830, end: 19970930
  2. PROVERA [Suspect]
     Dosage: 2.5 mg, UNK
     Route: 048
     Dates: start: 20020828, end: 20030711
  3. PREMARIN [Suspect]
     Indication: HORMONE REPLACEMENT THERAPY
     Dosage: 0.625 mg, UNK
     Route: 048
     Dates: start: 19970830, end: 19970930
  4. PREMARIN [Suspect]
     Dosage: 0.625 mg, UNK
     Route: 048
     Dates: start: 20020828, end: 20030711
  5. PREMARIN [Suspect]
     Dosage: 0.3 mg, UNK
     Route: 048
     Dates: start: 19970830, end: 19970930
  6. PREMARIN [Suspect]
     Dosage: 0.3 mg, UNK
     Route: 048
     Dates: start: 20020828, end: 20030711
  7. PREMARIN [Suspect]
     Dosage: UNK
     Route: 048
     Dates: start: 2004, end: 2005
  8. PREMPRO [Suspect]
     Indication: HORMONE REPLACEMENT THERAPY
     Dosage: 0.625/2.5 mg
     Route: 048
     Dates: start: 19950701, end: 19970830
  9. PREMPRO [Suspect]
     Dosage: 0.625/2.5 mg
     Route: 048
     Dates: start: 19970930, end: 19991011
  10. PREMPRO [Suspect]
     Dosage: 0.625/2.5 mg
     Route: 048
     Dates: start: 19991124, end: 20020828
  11. PREMPRO [Suspect]
     Dosage: 0.625/2.5 mg
     Route: 048
     Dates: start: 20040720, end: 20050902
  12. MEDROXYPROGESTERONE ACETATE [Suspect]
     Indication: HORMONE REPLACEMENT THERAPY
     Dosage: 2.5 mg, UNK
     Route: 048
     Dates: start: 20040404, end: 20050801
  13. MEDROXYPROGESTERONE ACETATE [Suspect]
     Dosage: UNK
     Route: 048
     Dates: start: 2002, end: 2005

REACTIONS (1)
  - Breast cancer female [Unknown]
